FAERS Safety Report 7653420-6 (Version None)
Quarter: 2011Q3

REPORT INFORMATION
  Report Type: 
  Country: None (occurrence: None)
  Receive Date: 20110803
  Receipt Date: 20110801
  Transmission Date: 20111222
  Serious: Yes (Other)
  Sender: FDA-Public Use
  Company Number: US-PFIZER INC-2011099020

PATIENT
  Sex: Female

DRUGS (3)
  1. VICODIN [Concomitant]
     Indication: ANALGESIC THERAPY
     Dosage: UNK
     Dates: start: 20040101, end: 20110101
  2. PERCOCET [Concomitant]
     Indication: ANALGESIC THERAPY
     Dosage: UNK
     Dates: start: 20040101
  3. CHANTIX [Suspect]
     Indication: SMOKING CESSATION THERAPY
     Dosage: UNK
     Dates: start: 20070601, end: 20071001

REACTIONS (6)
  - SUICIDAL IDEATION [None]
  - AGITATION [None]
  - MOOD ALTERED [None]
  - ANXIETY [None]
  - DEPRESSION [None]
  - ABNORMAL DREAMS [None]
